FAERS Safety Report 5057626-4 (Version None)
Quarter: 2006Q3

REPORT INFORMATION
  Report Type: 
  Country: None (occurrence: None)
  Receive Date: 20060721
  Receipt Date: 20060103
  Transmission Date: 20061208
  Serious: No
  Sender: FDA-Public Use
  Company Number: US-GLAXOSMITHKLINE-A0587556A

PATIENT
  Age: 64 Year
  Sex: Male

DRUGS (6)
  1. AVANDIA [Suspect]
     Dosage: 8MG AT NIGHT
     Route: 048
     Dates: start: 20050501
  2. HYZAAR [Concomitant]
  3. LORAZEPAM [Concomitant]
  4. VYTORIN [Concomitant]
  5. ASPIRIN [Concomitant]
  6. EFFEXOR [Concomitant]

REACTIONS (1)
  - WEIGHT INCREASED [None]
